FAERS Safety Report 9558835 (Version 1)
Quarter: 2013Q3

REPORT INFORMATION
  Report Type: Spontaneous
  Country: CA (occurrence: CA)
  Receive Date: 20130926
  Receipt Date: 20130926
  Transmission Date: 20140515
  Serious: Yes (Death, Hospitalization)
  Sender: FDA-Public Use
  Company Number: CA-ROCHE-1280553

PATIENT
  Age: 59 Year
  Sex: Male
  Weight: 85 kg

DRUGS (10)
  1. PEGASYS [Suspect]
     Indication: PRODUCT USED FOR UNKNOWN INDICATION
     Dosage: THERAPY DURATION: 128 DAYS
     Route: 058
  2. RIBAVIRIN [Suspect]
     Indication: PRODUCT USED FOR UNKNOWN INDICATION
     Dosage: THERAPY DURATION: 128 DAYS
     Route: 048
  3. VICTRELIS [Suspect]
     Indication: PRODUCT USED FOR UNKNOWN INDICATION
     Dosage: THERAPY DURATION: 100 DAYS
     Route: 048
  4. DIAZEPAM [Concomitant]
     Route: 065
  5. EPREX [Concomitant]
     Route: 042
  6. GLYBURIDE [Concomitant]
     Route: 065
  7. LASIX [Concomitant]
     Route: 065
  8. METFORMIN [Concomitant]
     Route: 065
  9. NADOLOL [Concomitant]
     Route: 065
  10. SPIRONOLACTONE [Concomitant]
     Route: 065

REACTIONS (11)
  - Anaemia [Fatal]
  - Ascites [Fatal]
  - Blood glucose increased [Fatal]
  - Condition aggravated [Fatal]
  - Confusional state [Fatal]
  - Ketoacidosis [Fatal]
  - Loss of consciousness [Fatal]
  - Multi-organ failure [Fatal]
  - Platelet count decreased [Fatal]
  - Renal failure [Fatal]
  - Septic shock [Fatal]
